FAERS Safety Report 5763630-0 (Version None)
Quarter: 2008Q2

REPORT INFORMATION
  Report Type: 
  Country: None (occurrence: None)
  Receive Date: 20080610
  Receipt Date: 20080529
  Transmission Date: 20081010
  Serious: Yes (Other)
  Sender: FDA-Public Use
  Company Number: US-JNJFOC-20080201073

PATIENT
  Sex: Male
  Weight: 89.27 kg

DRUGS (6)
  1. REMICADE [Suspect]
     Route: 042
  2. REMICADE [Suspect]
     Indication: COLITIS ULCERATIVE
     Route: 042
  3. ZANTAC [Concomitant]
     Indication: PREMEDICATION
  4. ZYRTEC [Concomitant]
     Indication: PREMEDICATION
  5. PREDNISONE TAB [Concomitant]
     Indication: PREMEDICATION
  6. TYLENOL [Concomitant]
     Indication: PREMEDICATION

REACTIONS (5)
  - BACK PAIN [None]
  - BLOOD PRESSURE INCREASED [None]
  - INFUSION RELATED REACTION [None]
  - PAIN [None]
  - TREMOR [None]
